FAERS Safety Report 7065422-1 (Version None)
Quarter: 2010Q4

REPORT INFORMATION
  Report Type: 
  Country: None (occurrence: None)
  Receive Date: 20101027
  Receipt Date: 20101018
  Transmission Date: 20110411
  Serious: Yes (Hospitalization)
  Sender: FDA-Public Use
  Company Number: FR-CEPHALON-2010005608

PATIENT
  Sex: Female

DRUGS (5)
  1. TREANDA [Suspect]
     Indication: MULTIPLE MYELOMA
     Route: 042
     Dates: start: 20100412, end: 20101004
  2. VELCADE [Suspect]
     Indication: MULTIPLE MYELOMA
     Route: 042
     Dates: start: 20100412, end: 20101004
  3. DEXAMETHASONE [Suspect]
     Indication: MULTIPLE MYELOMA
     Route: 048
     Dates: start: 20100412, end: 20101004
  4. VALACYCLOVIR HYDROCHLORIDE [Concomitant]
     Dates: start: 20100412
  5. NEULASTA [Concomitant]
     Dates: start: 20100101

REACTIONS (1)
  - BRONCHIOLITIS [None]
